FAERS Safety Report 5027719-6 (Version None)
Quarter: 2006Q2

REPORT INFORMATION
  Report Type: 
  Country: None (occurrence: None)
  Receive Date: 20060428
  Receipt Date: 20060217
  Transmission Date: 20061013
  Serious: No
  Sender: FDA-Public Use
  Company Number: COT_0415_2006

PATIENT
  Age: 25 Year
  Sex: Female
  Weight: 50.3493 kg

DRUGS (8)
  1. VENTAVIS [Suspect]
     Indication: PULMONARY HYPERTENSION
     Dosage: 2.5 MCG 5XD IH
     Route: 055
     Dates: start: 20060214
  2. IMURAN [Concomitant]
  3. MORPHINE [Concomitant]
  4. PREDNISONE TAB [Concomitant]
  5. PANCREALIPASE [Concomitant]
  6. NITROGLYCERIN [Concomitant]
  7. VICODIN [Concomitant]
  8. PERCOCET [Concomitant]

REACTIONS (1)
  - DIZZINESS [None]
